FAERS Safety Report 6875616-3 (Version None)
Quarter: 2010Q3

REPORT INFORMATION
  Report Type: 
  Country: None (occurrence: None)
  Receive Date: 20100727
  Receipt Date: 20100716
  Transmission Date: 20110219
  Serious: Yes (Other)
  Sender: FDA-Public Use
  Company Number: CA-JNJFOC-20100706115

PATIENT
  Sex: Male
  Weight: 114 kg

DRUGS (16)
  1. REMICADE [Suspect]
     Indication: RHEUMATOID ARTHRITIS
     Route: 042
  2. REMICADE [Suspect]
     Route: 042
  3. OMEGA 3-6-9 [Concomitant]
     Indication: RHEUMATOID ARTHRITIS
  4. NITRO-DUR [Concomitant]
  5. PLAVIX [Concomitant]
  6. ZANTAC [Concomitant]
  7. CRESTOR [Concomitant]
  8. FENOFIBRATE [Concomitant]
  9. OXAZEPAM [Concomitant]
  10. METOPROLOL SUCCINATE [Concomitant]
  11. NORVASC [Concomitant]
  12. RAMIPRIL [Concomitant]
  13. MORPHINE [Concomitant]
  14. NEXIUM [Concomitant]
  15. DOCUSATE SODIUM [Concomitant]
  16. ASPIRIN [Concomitant]

REACTIONS (2)
  - BONE PAIN [None]
  - PAIN IN EXTREMITY [None]
